FAERS Safety Report 8282183 (Version 3)
Quarter: 2013Q1

REPORT INFORMATION
  Report Type: Report from Study
  Country: KR (occurrence: KR)
  Receive Date: 20111209
  Receipt Date: 20130312
  Transmission Date: 20140127
  Serious: Yes (Death, Hospitalization)
  Sender: FDA-Public Use
  Company Number: KR-BAYER-2011-112184

PATIENT
  Age: 52 Year
  Sex: Female
  Weight: 47 kg

DRUGS (4)
  1. SORAFENIB (RAF KINASE INHIBITOR) [Suspect]
     Indication: GASTRIC CANCER
     Dosage: 800MG/DAY, FREQUENCY: BID
     Dates: start: 20111012
  2. SORAFENIB (RAF KINASE INHIBITOR) [Suspect]
     Indication: GASTRIC CANCER
     Dosage: 400 MG, BID
     Dates: start: 20111101, end: 20111118
  3. CAPECITABINE [Suspect]
     Indication: GASTRIC CANCER
     Dosage: 2300MG/DAY, FREQUENCY: BID
     Dates: start: 20111101, end: 20111115
  4. CISPLATIN [Suspect]
     Indication: GASTRIC CANCER
     Dosage: 90MG OD
     Dates: start: 20111101

REACTIONS (3)
  - Cerebral infarction [Not Recovered/Not Resolved]
  - Somnolence [Not Recovered/Not Resolved]
  - Death [Fatal]
